FAERS Safety Report 21260638 (Version 3)
Quarter: 2022Q4

REPORT INFORMATION
  Report Type: Report from Study
  Country: DE (occurrence: DE)
  Receive Date: 20220826
  Receipt Date: 20221019
  Transmission Date: 20230112
  Serious: Yes (Hospitalization, Other)
  Sender: FDA-Public Use
  Company Number: DE-TEVA-2022-DE-2059277

PATIENT
  Sex: Female

DRUGS (12)
  1. CELECOXIB [Suspect]
     Active Substance: CELECOXIB
     Indication: Axial spondyloarthritis
     Route: 065
     Dates: start: 20210320
  2. HULIO [Suspect]
     Active Substance: ADALIMUMAB-FKJP
     Indication: Axial spondyloarthritis
     Route: 065
     Dates: start: 20200225
  3. LEVETIRACETAM [Suspect]
     Active Substance: LEVETIRACETAM
     Indication: Axial spondyloarthritis
     Dosage: DAILY DOSE: 1500MILLIGRAM
     Route: 065
     Dates: start: 20200401
  4. XARELTO [Suspect]
     Active Substance: RIVAROXABAN
     Indication: Axial spondyloarthritis
     Dosage: DAILY DOSE: 5 MILLIGRAM
     Route: 065
     Dates: start: 20210702
  5. TORSEMIDE [Suspect]
     Active Substance: TORSEMIDE
     Indication: Axial spondyloarthritis
     Dosage: DAILY DOSE: 2.5 MILLIGRAM
     Route: 065
  6. TORSEMIDE [Suspect]
     Active Substance: TORSEMIDE
     Dosage: DAILY DOSE: 5 MILLIGRAM
     Route: 065
     Dates: start: 20210518
  7. ASPIRIN [Suspect]
     Active Substance: ASPIRIN
     Indication: Axial spondyloarthritis
     Dosage: DAILY DOSE: 100 MILLIGRAM
     Route: 065
     Dates: start: 20210702
  8. FORMOTEROL FUMARATE [Suspect]
     Active Substance: FORMOTEROL FUMARATE
     Indication: Axial spondyloarthritis
     Dosage: DAILY DOSE: 0.02 MILLIGRAM
     Route: 065
     Dates: start: 20200101
  9. FALITHROM [Suspect]
     Active Substance: PHENPROCOUMON
     Indication: Axial spondyloarthritis
     Dosage: DAILY DOSE: UNKNOWN
     Route: 065
     Dates: start: 20200101
  10. ATORVASTATIN [Suspect]
     Active Substance: ATORVASTATIN
     Indication: Axial spondyloarthritis
     Dosage: DAILY DOSE: 10 MILLIGRAM
     Route: 065
     Dates: start: 20200101
  11. FORMOTEROL [Suspect]
     Active Substance: FORMOTEROL
     Indication: Axial spondyloarthritis
     Dosage: DAILY DOSE: 0.02 MILLIGRAM
     Route: 065
     Dates: start: 20200101
  12. LEVOTHYROXINE SODIUM [Suspect]
     Active Substance: LEVOTHYROXINE SODIUM
     Indication: Axial spondyloarthritis
     Dosage: DAILY DOSE: 0.05 MILLIGRAM
     Route: 065
     Dates: start: 20200101

REACTIONS (3)
  - Dry gangrene [Not Recovered/Not Resolved]
  - Vascular graft occlusion [Not Recovered/Not Resolved]
  - Vascular graft infection [Not Recovered/Not Resolved]

NARRATIVE: CASE EVENT DATE: 20210504
